FAERS Safety Report 21447256 (Version 1)
Quarter: 2022Q4

REPORT INFORMATION
  Report Type: Spontaneous
  Country: US (occurrence: None)
  Receive Date: 20221011
  Receipt Date: 20221011
  Transmission Date: 20230113
  Serious: No
  Sender: FDA-Public Use
  Company Number: None

PATIENT
  Sex: Female

DRUGS (1)
  1. ENTYVIO [Suspect]
     Active Substance: VEDOLIZUMAB
     Indication: Colitis ulcerative
     Dosage: FREQUENCY : MONTHLY;?OTHER ROUTE : IV;?
     Route: 050
     Dates: start: 20191029

REACTIONS (2)
  - Drug ineffective [None]
  - Therapy change [None]
